FAERS Safety Report 6731250-7 (Version None)
Quarter: 2010Q2

REPORT INFORMATION
  Report Type: 
  Country: None (occurrence: None)
  Receive Date: 20100517
  Receipt Date: 20100517
  Transmission Date: 20101027
  Serious: No
  Sender: FDA-Public Use
  Company Number: None

PATIENT
  Sex: Female
  Weight: 107.92 kg

DRUGS (3)
  1. CISPLATIN [Suspect]
     Dosage: 60 MG
  2. DOXORUBICIN HCL [Suspect]
     Dosage: 0 MG
  3. TAXOL [Suspect]
     Dosage: 150 MG

REACTIONS (4)
  - HAEMOGLOBIN DECREASED [None]
  - NEUTROPENIA [None]
  - PLATELET COUNT DECREASED [None]
  - WHITE BLOOD CELL COUNT DECREASED [None]
